FAERS Safety Report 6232401-3 (Version None)
Quarter: 2009Q2

REPORT INFORMATION
  Report Type: 
  Country: None (occurrence: None)
  Receive Date: 20090617
  Receipt Date: 20090608
  Transmission Date: 20091009
  Serious: Yes (Other)
  Sender: FDA-Public Use
  Company Number: PHHY2009JP22873

PATIENT
  Age: 70 Year
  Sex: Female

DRUGS (3)
  1. AREDIA [Suspect]
     Dosage: 90 MG, UNK
  2. TRASTUZUMAB [Suspect]
  3. DOCETAXEL [Suspect]

REACTIONS (7)
  - BACTERIAL INFECTION [None]
  - BONE DISORDER [None]
  - GINGIVAL RECESSION [None]
  - OSTEONECROSIS [None]
  - PERIODONTITIS [None]
  - PRIMARY SEQUESTRUM [None]
  - TOOTHACHE [None]
